FAERS Safety Report 5926376-1 (Version None)
Quarter: 2008Q4

REPORT INFORMATION
  Report Type: 
  Country: None (occurrence: None)
  Receive Date: 20081022
  Receipt Date: 20081014
  Transmission Date: 20090506
  Serious: Yes (Hospitalization)
  Sender: FDA-Public Use
  Company Number: DE-AMGEN-UK313223

PATIENT
  Age: 28 Year
  Sex: Male
  Weight: 50 kg

DRUGS (2)
  1. NEUPOGEN [Suspect]
     Indication: NEUTROPENIA
     Route: 065
  2. LENOGRASTIM [Suspect]

REACTIONS (10)
  - ACUTE MYELOID LEUKAEMIA [None]
  - BONE PAIN [None]
  - CYTOGENETIC ABNORMALITY [None]
  - DYSPNOEA [None]
  - FATIGUE [None]
  - GINGIVAL BLEEDING [None]
  - HEPATOSPLENOMEGALY [None]
  - NIGHT SWEATS [None]
  - PANCYTOPENIA [None]
  - RELAPSING FEVER [None]
